FAERS Safety Report 16320784 (Version 3)
Quarter: 2019Q4

REPORT INFORMATION
  Report Type: Spontaneous
  Country: PT (occurrence: PT)
  Receive Date: 20190516
  Receipt Date: 20191210
  Transmission Date: 20200122
  Serious: Yes (Hospitalization, Other)
  Sender: FDA-Public Use
  Company Number: PT-MYLANLABS-2019M1045999

PATIENT
  Age: 57 Year
  Sex: Female

DRUGS (4)
  1. DOSULEPIN HYDROCHLORIDE [Suspect]
     Active Substance: DOTHIEPIN HYDROCHLORIDE
     Indication: MENTAL DISORDER
     Dosage: UNK
     Route: 065
  2. CYAMEMAZINE [Suspect]
     Active Substance: CYAMEMAZINE
     Indication: MENTAL DISORDER
     Dosage: UNK
     Route: 065
  3. BROMAZEPAM [Suspect]
     Active Substance: BROMAZEPAM
     Indication: MENTAL DISORDER
     Dosage: UNK
     Route: 048
  4. OMEPRAZOLE. [Suspect]
     Active Substance: OMEPRAZOLE
     Indication: GASTRITIS
     Dosage: UNK
     Route: 065

REACTIONS (10)
  - C-reactive protein increased [Unknown]
  - Rhabdomyolysis [Unknown]
  - Stress cardiomyopathy [Unknown]
  - Neutrophilia [Unknown]
  - Leukocytosis [Unknown]
  - Toxicity to various agents [Unknown]
  - Intentional overdose [Unknown]
  - Acute kidney injury [Unknown]
  - Hepatocellular injury [Unknown]
  - Drug abuse [Unknown]
